FAERS Safety Report 5929874-X (Version None)
Quarter: 2008Q4

REPORT INFORMATION
  Report Type: 
  Country: None (occurrence: None)
  Receive Date: 20081024
  Receipt Date: 20081016
  Transmission Date: 20090506
  Serious: Yes (Other)
  Sender: FDA-Public Use
  Company Number: BR-PFIZER INC-2008043229

PATIENT
  Sex: Female

DRUGS (2)
  1. XALATAN [Suspect]
     Indication: INTRAOCULAR PRESSURE TEST ABNORMAL
     Route: 047
     Dates: start: 20030219, end: 20080601
  2. XALATAN [Suspect]
     Indication: OCULAR HYPERTENSION

REACTIONS (4)
  - DIABETIC RETINOPATHY [None]
  - EYE IRRITATION [None]
  - EYELID DISORDER [None]
  - OCULAR HYPERAEMIA [None]
